FAERS Safety Report 19247744 (Version 2)
Quarter: 2022Q2

REPORT INFORMATION
  Report Type: Report from Study
  Country: CA (occurrence: CA)
  Receive Date: 20210512
  Receipt Date: 20220526
  Transmission Date: 20220721
  Serious: Yes (Other)
  Sender: FDA-Public Use
  Company Number: CA-BAYER-2021-135723

PATIENT
  Sex: Female

DRUGS (2)
  1. EYLEA [Suspect]
     Active Substance: AFLIBERCEPT
     Indication: Neovascular age-related macular degeneration
     Dosage: RIGHT EYE, FORMULATION: SOLUTION FOR INJECTION, 40 MG/ML
     Dates: start: 20190214, end: 20190514
  2. EYLEA [Suspect]
     Active Substance: AFLIBERCEPT
     Dosage: 2 MG, FORMULATION: SOLUTION FOR INJECTION, 40 MG/ML
     Route: 031

REACTIONS (2)
  - Central vision loss [Not Recovered/Not Resolved]
  - Cataract [Unknown]
